FAERS Safety Report 9892541 (Version 1)
Quarter: 2014Q1

REPORT INFORMATION
  Report Type: Spontaneous
  Country: US (occurrence: US)
  Receive Date: 20140212
  Receipt Date: 20140212
  Transmission Date: 20141002
  Serious: No
  Sender: FDA-Public Use
  Company Number: US-BAXTER-2014BAX004742

PATIENT
  Age: 24 Year
  Sex: Female

DRUGS (4)
  1. PENICILLIN G POTASSIUM INJECTION, USP [Suspect]
     Indication: BETA HAEMOLYTIC STREPTOCOCCAL INFECTION
     Route: 042
     Dates: start: 20140127, end: 20140127
  2. LACTATED RINGER^S INJECTION, USP [Suspect]
     Indication: PRODUCT USED FOR UNKNOWN INDICATION
     Route: 042
     Dates: start: 20140127, end: 20140128
  3. 0.9% SODIUM CHLORIDE INJECTION [Suspect]
     Indication: MEDICATION DILUTION
     Route: 042
  4. PENICILLIN-G [Suspect]
     Indication: BETA HAEMOLYTIC STREPTOCOCCAL INFECTION
     Route: 042
     Dates: start: 20140127, end: 20140127

REACTIONS (2)
  - Infusion site pain [Recovered/Resolved]
  - Exposure during pregnancy [Recovered/Resolved]
